FAERS Safety Report 9742577 (Version 1)
Quarter: 2013Q4

REPORT INFORMATION
  Report Type: Spontaneous
  Country: US (occurrence: US)
  Receive Date: 20131210
  Receipt Date: 20131210
  Transmission Date: 20140711
  Serious: Yes (Other)
  Sender: FDA-Public Use
  Company Number: US-GILEAD-2009-0024524

PATIENT
  Sex: Female

DRUGS (12)
  1. LETAIRIS [Suspect]
     Indication: PULMONARY ARTERIAL HYPERTENSION
     Route: 048
     Dates: start: 20090907
  2. SYMBICORT [Concomitant]
  3. ZYRTEC [Concomitant]
  4. VERAMYST [Concomitant]
  5. ACTOS [Concomitant]
  6. SIMVASTATIN [Concomitant]
  7. CYCLOBENZAPRINE [Concomitant]
  8. TRAMADOL [Concomitant]
  9. GLYBURIDE [Concomitant]
  10. CLONIDINE [Concomitant]
  11. PAROXETINE [Concomitant]
  12. TYLENOL WITH CODEINE #3 [Concomitant]

REACTIONS (1)
  - Anaemia [Recovering/Resolving]
